FAERS Safety Report 4935091-2 (Version None)
Quarter: 2006Q1

REPORT INFORMATION
  Report Type: 
  Country: None (occurrence: None)
  Receive Date: 20060303
  Receipt Date: 20060303
  Transmission Date: 20060701
  Serious: Yes (Life-Threatening, Disabling, Other)
  Sender: FDA-Public Use
  Company Number: None

PATIENT
  Age: 48 Year
  Sex: Female
  Weight: 47.6277 kg

DRUGS (4)
  1. ADDERALL XR 20 [Suspect]
     Indication: ATTENTION DEFICIT/HYPERACTIVITY DISORDER
     Dosage: 20 MG 2 PO QD
     Route: 048
     Dates: start: 20040712, end: 20060201
  2. KLONOPIN [Concomitant]
  3. LAMICTAL [Concomitant]
  4. SEROQUEL [Concomitant]

REACTIONS (2)
  - DIPLOPIA [None]
  - ISCHAEMIC CEREBRAL INFARCTION [None]
